FAERS Safety Report 24905764 (Version 2)
Quarter: 2025Q1

REPORT INFORMATION
  Report Type: Spontaneous
  Country: JP (occurrence: JP)
  Receive Date: 20250130
  Receipt Date: 20250212
  Transmission Date: 20250409
  Serious: No
  Sender: GALDERMA
  Company Number: JP-GALDERMA-JP2025001094

PATIENT

DRUGS (2)
  1. NEMOLIZUMAB [Suspect]
     Active Substance: NEMOLIZUMAB
     Indication: Dermatitis atopic
     Route: 058
     Dates: start: 20241226, end: 20241226
  2. NEMOLIZUMAB [Suspect]
     Active Substance: NEMOLIZUMAB
     Route: 058
     Dates: start: 20250123, end: 20250123

REACTIONS (1)
  - Eczema asteatotic [Not Recovered/Not Resolved]

NARRATIVE: CASE EVENT DATE: 20241201
